FAERS Safety Report 11365746 (Version 1)
Quarter: 2015Q3

REPORT INFORMATION
  Report Type: Spontaneous
  Country: RU (occurrence: RU)
  Receive Date: 20150811
  Receipt Date: 20150811
  Transmission Date: 20151125
  Serious: Yes (Other)
  Sender: FDA-Public Use
  Company Number: RU-EISAI MEDICAL RESEARCH-EC-2015-009357

PATIENT
  Age: 4 Year
  Sex: Male

DRUGS (3)
  1. FYCOMPA [Suspect]
     Active Substance: PERAMPANEL
     Indication: EPILEPSY
     Route: 048
     Dates: start: 201502, end: 2015
  2. FYCOMPA [Suspect]
     Active Substance: PERAMPANEL
     Route: 048
     Dates: start: 2015, end: 2015
  3. FYCOMPA [Suspect]
     Active Substance: PERAMPANEL
     Route: 048
     Dates: start: 2015

REACTIONS (3)
  - Somnolence [Recovered/Resolved]
  - Overdose [Recovered/Resolved]
  - Off label use [Recovered/Resolved]

NARRATIVE: CASE EVENT DATE: 2015
